FAERS Safety Report 16611290 (Version 2)
Quarter: 2019Q3

REPORT INFORMATION
  Report Type: Report from Study
  Country: US (occurrence: US)
  Receive Date: 20190722
  Receipt Date: 20190801
  Transmission Date: 20191004
  Serious: No
  Sender: FDA-Public Use
  Company Number: US-SA-2019SA197544

PATIENT
  Age: 46 Year
  Sex: Female

DRUGS (5)
  1. TECFIDERA [Concomitant]
     Active Substance: DIMETHYL FUMARATE
  2. NICOTINE. [Concomitant]
     Active Substance: NICOTINE
  3. CAFFEINE. [Concomitant]
     Active Substance: CAFFEINE
  4. TERIFLUNOMIDE. [Suspect]
     Active Substance: TERIFLUNOMIDE
     Indication: MULTIPLE SCLEROSIS
     Dosage: 7 MG, QD
     Route: 048
     Dates: start: 20190520
  5. COPAXONE [Concomitant]
     Active Substance: GLATIRAMER ACETATE

REACTIONS (15)
  - Oedema peripheral [Recovering/Resolving]
  - Obesity [Recovering/Resolving]
  - Sensory loss [Recovering/Resolving]
  - Tenderness [Recovering/Resolving]
  - Muscular weakness [Recovering/Resolving]
  - Diarrhoea [Unknown]
  - Discomfort [Recovering/Resolving]
  - Dyspnoea [Recovering/Resolving]
  - Gait disturbance [Recovering/Resolving]
  - Myalgia [Recovering/Resolving]
  - Headache [Unknown]
  - Spinal pain [Recovering/Resolving]
  - Hypertonia [Recovering/Resolving]
  - Fatigue [Unknown]
  - Joint range of motion decreased [Recovering/Resolving]

NARRATIVE: CASE EVENT DATE: 2019
